FAERS Safety Report 12113911 (Version 2)
Quarter: 2016Q1

REPORT INFORMATION
  Report Type: Spontaneous
  Country: IT (occurrence: IT)
  Receive Date: 20160225
  Receipt Date: 20160324
  Transmission Date: 20160526
  Serious: Yes (Other)
  Sender: FDA-Public Use
  Company Number: PHHY2016IT023817

PATIENT
  Age: 45 Year
  Sex: Female

DRUGS (8)
  1. ZOFRAN [Suspect]
     Active Substance: ONDANSETRON HYDROCHLORIDE
     Indication: PROCEDURAL VOMITING
     Dosage: 1 DF, TOT
     Route: 042
     Dates: start: 20160128, end: 20160128
  2. LYRICA [Concomitant]
     Active Substance: PREGABALIN
     Indication: ULNAR NEURITIS
     Dosage: 150 MG, UNK
     Route: 048
     Dates: start: 20140701
  3. MORPHINE [Suspect]
     Active Substance: MORPHINE
     Indication: PROCEDURAL PAIN
     Dosage: 1 DF, TOT
     Route: 042
     Dates: start: 20160128, end: 20160128
  4. CEFAMEZIN                          /01139101/ [Suspect]
     Active Substance: CEFAZOLIN\LIDOCAINE
     Indication: ENDOCARDITIS PROPHYLAXIS
     Dosage: 2 G, TOT
     Route: 042
     Dates: start: 20160128
  5. SELOKEEN [Concomitant]
     Active Substance: METOPROLOL
     Indication: VENTRICULAR ARRHYTHMIA
     Dosage: 100 MG, UNK
     Route: 048
     Dates: start: 20130301
  6. CIPRALEX [Concomitant]
     Active Substance: ESCITALOPRAM OXALATE
     Indication: ANXIETY
     Dosage: 10 MG, UNK
     Route: 048
     Dates: start: 20140201
  7. TORVAST [Concomitant]
     Active Substance: ATORVASTATIN
     Indication: TYPE IIA HYPERLIPIDAEMIA
     Dosage: 10 MG, UNK
     Route: 048
     Dates: start: 20150210
  8. PANTOPRAZOLE MYLAN [Concomitant]
     Active Substance: PANTOPRAZOLE SODIUM
     Indication: CHRONIC GASTRITIS
     Dosage: 20 MG, UNK
     Route: 048
     Dates: start: 20100101

REACTIONS (3)
  - Pruritus [Recovered/Resolved]
  - Urticaria [Recovered/Resolved]
  - Epiglottic oedema [Recovered/Resolved]

NARRATIVE: CASE EVENT DATE: 20160128
